FAERS Safety Report 9717326 (Version 1)
Quarter: 2013Q4

REPORT INFORMATION
  Report Type: Spontaneous
  Country: US (occurrence: US)
  Receive Date: 20131127
  Receipt Date: 20131127
  Transmission Date: 20140711
  Serious: Yes (Other)
  Sender: FDA-Public Use
  Company Number: US-SHIRE-ALL1-2013-08147

PATIENT
  Age: 13 Year
  Sex: Male

DRUGS (4)
  1. VYVANSE [Suspect]
     Indication: ATTENTION DEFICIT/HYPERACTIVITY DISORDER
     Dosage: 30 MG, UNKNOWN
     Route: 048
  2. VYVANSE [Suspect]
     Dosage: 20 MG, UNKNOWN
     Route: 048
  3. VYVANSE [Suspect]
     Dosage: 30 MG, UNKNOWN
     Route: 048
  4. ZOLOFT [Suspect]
     Indication: PRODUCT USED FOR UNKNOWN INDICATION
     Dosage: 25 MG, UNKNOWN
     Route: 065

REACTIONS (2)
  - Neuroleptic malignant syndrome [Recovered/Resolved]
  - Extrapyramidal disorder [Recovered/Resolved]
